FAERS Safety Report 8047793 (Version 8)
Quarter: 2013Q2

REPORT INFORMATION
  Report Type: Spontaneous
  Country: US (occurrence: US)
  Receive Date: 20110721
  Receipt Date: 20130603
  Transmission Date: 20140414
  Serious: Yes (Life-Threatening, Hospitalization, Congenital Anomaly, Other)
  Sender: FDA-Public Use
  Company Number: US-PFIZER INC-2011158600

PATIENT
  Sex: Male
  Weight: 2.17 kg

DRUGS (2)
  1. EFFEXOR [Suspect]
     Dosage: 37.5 MG, UNK
     Route: 064
     Dates: start: 19990507
  2. VENLAFAXINE HCL [Suspect]
     Dosage: UNK
     Route: 064

REACTIONS (37)
  - Maternal exposure timing unspecified [Unknown]
  - Hypoplastic left heart syndrome [Unknown]
  - Dextrocardia [Unknown]
  - Double outlet right ventricle [Unknown]
  - Patent ductus arteriosus [Unknown]
  - Atrial septal defect [Unknown]
  - Ventricular septal defect [Unknown]
  - Tricuspid valve incompetence [Unknown]
  - Pulmonary artery atresia [Unknown]
  - Pulmonary valve stenosis [Unknown]
  - Respiratory distress [Unknown]
  - Hyperbilirubinaemia neonatal [Unknown]
  - Umbilical cord abnormality [Unknown]
  - Pyelocaliectasis [Unknown]
  - Pectus excavatum [Unknown]
  - Ear malformation [Unknown]
  - VIIth nerve paralysis [Not Recovered/Not Resolved]
  - Cardiomegaly [Unknown]
  - Mitral valve atresia [Unknown]
  - Congenital scoliosis [Unknown]
  - Vesicoureteric reflux [Recovered/Resolved]
  - Deafness neurosensory [Unknown]
  - IIIrd nerve paralysis [Unknown]
  - Deafness bilateral [Unknown]
  - Microcephaly [Unknown]
  - Hemivertebra [Unknown]
  - Microtia [Not Recovered/Not Resolved]
  - Ear disorder [Not Recovered/Not Resolved]
  - Otitis media [Not Recovered/Not Resolved]
  - Microgenia [Unknown]
  - Bell^s phenomenon [Unknown]
  - Velopharyngeal incompetence [Unknown]
  - Speech disorder developmental [Unknown]
  - Hypermetropia [Not Recovered/Not Resolved]
  - VIIIth nerve lesion [Unknown]
  - Glossopharyngeal nerve paralysis [Unknown]
  - Vagus nerve paralysis [Unknown]
